FAERS Safety Report 11222116 (Version 1)
Quarter: 2015Q2

REPORT INFORMATION
  Report Type: Spontaneous
  Country: DE (occurrence: DE)
  Receive Date: 20150626
  Receipt Date: 20150626
  Transmission Date: 20150821
  Serious: Yes (Other)
  Sender: FDA-Public Use
  Company Number: DE-GILEAD-2015-0159534

PATIENT
  Age: 28 Year
  Sex: Female

DRUGS (1)
  1. CAYSTON [Suspect]
     Active Substance: AZTREONAM
     Indication: PRODUCT USED FOR UNKNOWN INDICATION
     Dosage: UNK, 21 DAY CYCLES AND 28 DAY CYCLES
     Route: 065
     Dates: start: 201105

REACTIONS (2)
  - Off label use [Unknown]
  - Bronchial obstruction [Unknown]
